FAERS Safety Report 24941951 (Version 1)
Quarter: 2025Q1

REPORT INFORMATION
  Report Type: Spontaneous
  Country: US (occurrence: None)
  Receive Date: 20250207
  Receipt Date: 20250207
  Transmission Date: 20250409
  Serious: Yes (Other)
  Sender: FDA-CTU
  Company Number: None

PATIENT
  Age: 30 Month
  Sex: Female
  Weight: 13 kg

DRUGS (4)
  1. HOMEOPATHICS [Suspect]
     Active Substance: HOMEOPATHICS
     Indication: Illness
     Dosage: FREQUENCY : EVERY 4 HOURS;?
     Route: 048
     Dates: start: 20250205
  2. TYLENOL [Concomitant]
     Active Substance: ACETAMINOPHEN
  3. IBUPROFEN [Concomitant]
     Active Substance: IBUPROFEN
  4. EQUATE HOMEPATHIC COLD ND COUGH NIGHTTIME. [Concomitant]

REACTIONS (2)
  - Pyrexia [None]
  - Condition aggravated [None]

NARRATIVE: CASE EVENT DATE: 20250205
